FAERS Safety Report 8987678 (Version 1)
Quarter: 2012Q4

REPORT INFORMATION
  Report Type: 
  Country: CO (occurrence: CO)
  Receive Date: 20121227
  Receipt Date: 20121227
  Transmission Date: 20130627
  Serious: Yes (Other)
  Sender: FDA-Public Use
  Company Number: CO-PFIZER INC-2012328150

PATIENT
  Age: 58 Year
  Sex: Female

DRUGS (4)
  1. PRISTIQ [Suspect]
     Indication: DEPRESSION
     Dosage: 50 mg, 1x/day
     Route: 048
     Dates: start: 2011, end: 201210
  2. THYROXINE [Concomitant]
     Indication: THYROID DISORDER
     Dosage: 88 mg, 1x/day
     Route: 048
     Dates: start: 2011
  3. VITAMIN C [Concomitant]
     Dosage: 1000 UNK, 1x/day
     Route: 048
  4. GAVISCON [Concomitant]
     Indication: REFLUX GASTRITIS
     Dosage: UNK

REACTIONS (3)
  - Arrhythmia [Recovered/Resolved]
  - Hepatic steatosis [Recovered/Resolved]
  - Constipation [Recovered/Resolved]
